FAERS Safety Report 8090762-7 (Version None)
Quarter: 2012Q1

REPORT INFORMATION
  Report Type: 
  Country: None (occurrence: None)
  Receive Date: 20120131
  Receipt Date: 20120120
  Transmission Date: 20120608
  Serious: Yes (Hospitalization, Disabling, Other)
  Sender: FDA-Public Use
  Company Number: US-BAYER-201013604NA

PATIENT
  Age: 50 Year
  Sex: Female
  Weight: 79.545 kg

DRUGS (21)
  1. YASMIN [Suspect]
     Indication: CEREBRAL INFARCTION
     Dosage: UNK
     Dates: start: 20050101, end: 20080115
  2. KEPPRA [Concomitant]
  3. YASMIN [Suspect]
     Indication: HORMONE THERAPY
  4. YASMIN [Suspect]
     Indication: ACNE
  5. SEROQUEL [Concomitant]
     Dates: start: 20080118
  6. DROSPIRENONE AND ETHINYL ESTRADIOL [Suspect]
     Indication: CEREBRAL INFARCTION
     Dosage: UNK
     Dates: start: 20050101, end: 20080115
  7. DROSPIRENONE AND ETHINYL ESTRADIOL [Suspect]
     Indication: HORMONE THERAPY
  8. FLUOXETINE [Concomitant]
  9. AMITRIPTYLINE HCL [Concomitant]
  10. LEVAQUIN [Concomitant]
  11. DIURETICS [Concomitant]
  12. PHENTERMINE [Concomitant]
  13. CARDENE [Concomitant]
     Dosage: DRIP INTERMITTENTLY
  14. CYTOMEL [Concomitant]
  15. YAZ [Suspect]
     Indication: CEREBRAL INFARCTION
     Dates: start: 20050101, end: 20080115
  16. MOTRIN [Concomitant]
  17. YAZ [Suspect]
     Indication: HORMONE THERAPY
  18. DIET PILLS (NOS) [Concomitant]
  19. LEVOXYL [Concomitant]
  20. DILANTIN [Concomitant]
  21. MULTI-VITAMINS [Concomitant]

REACTIONS (14)
  - ABASIA [None]
  - MYOCARDIAL INFARCTION [None]
  - HEMIPARESIS [None]
  - APHAGIA [None]
  - VIITH NERVE PARALYSIS [None]
  - CONVULSION [None]
  - RESTLESSNESS [None]
  - DEPRESSION [None]
  - BRAIN INJURY [None]
  - SPEECH DISORDER [None]
  - ANXIETY [None]
  - PSYCHOMOTOR HYPERACTIVITY [None]
  - MUSCULAR WEAKNESS [None]
  - CEREBRAL INFARCTION [None]
